FAERS Safety Report 12889433 (Version 2)
Quarter: 2016Q4

REPORT INFORMATION
  Report Type: Report from Study
  Country: GB (occurrence: GB)
  Receive Date: 20161027
  Receipt Date: 20161107
  Transmission Date: 20170207
  Serious: Yes (Other)
  Sender: FDA-Public Use
  Company Number: PHHO2016GB015527

PATIENT
  Age: 73 Year
  Sex: Male
  Weight: 70.4 kg

DRUGS (16)
  1. QUININE [Concomitant]
     Active Substance: QUININE
     Indication: MUSCLE SPASMS
     Dosage: UNK
     Route: 065
     Dates: start: 20160718
  2. ATENOLOL. [Concomitant]
     Active Substance: ATENOLOL
     Indication: MYOCARDIAL ISCHAEMIA
     Dosage: UNK
     Route: 065
     Dates: start: 201501
  3. ONDANSETRON [Concomitant]
     Active Substance: ONDANSETRON
     Indication: PREMEDICATION
     Dosage: UNK
     Route: 065
     Dates: start: 20160710
  4. DOMPERIDONE [Concomitant]
     Active Substance: DOMPERIDONE
     Indication: PREMEDICATION
     Dosage: UNK
     Route: 065
     Dates: start: 20160711
  5. PARACETAMOL [Concomitant]
     Active Substance: ACETAMINOPHEN
     Indication: BACK PAIN
     Dosage: UNK
     Route: 065
     Dates: start: 20160814
  6. ELTROMBOPAG [Suspect]
     Active Substance: ELTROMBOPAG
     Indication: MYELODYSPLASTIC SYNDROME
     Dosage: 100 MG, QOD
     Route: 048
     Dates: start: 20160704, end: 20161011
  7. DERMOL [Concomitant]
     Active Substance: BENZALKONIUM CHLORIDE\CHLORHEXIDINE HYDROCHLORIDE\ISOPROPYL MYRISTATE\PARAFFIN
     Indication: PRURITUS
     Dosage: UNK
     Route: 065
     Dates: start: 2015
  8. AZACITIDINE. [Suspect]
     Active Substance: AZACITIDINE
     Indication: MYELODYSPLASTIC SYNDROME
     Dosage: 525 MG/M2, EVERY 28 DAYS
     Route: 058
     Dates: start: 20160711, end: 20161010
  9. LAXIDO [Concomitant]
     Active Substance: POLYETHYLENE GLYCOL 3350\POTASSIUM CHLORIDE\SODIUM BICARBONATE\SODIUM CHLORIDE
     Indication: CONSTIPATION
     Dosage: UNK UNK, PRN
     Route: 065
     Dates: start: 20160716
  10. IBUPROFEN. [Concomitant]
     Active Substance: IBUPROFEN
     Indication: BACK PAIN
     Dosage: UNK
     Route: 065
     Dates: start: 20160814
  11. ASPIRIN. [Concomitant]
     Active Substance: ASPIRIN
     Indication: MYOCARDIAL ISCHAEMIA
     Dosage: UNK
     Route: 065
     Dates: start: 20160822
  12. HYDROCORTISONE. [Concomitant]
     Active Substance: HYDROCORTISONE
     Indication: SKIN IRRITATION
     Dosage: UNK UNK, PRN
     Route: 065
     Dates: start: 20160711
  13. OMEPRAZOLE. [Concomitant]
     Active Substance: OMEPRAZOLE
     Indication: PRODUCT USED FOR UNKNOWN INDICATION
     Dosage: UNK
     Route: 065
     Dates: start: 20160704
  14. MOVICOL [Concomitant]
     Active Substance: POLYETHYLENE GLYCOL 3350\POTASSIUM CHLORIDE\SODIUM BICARBONATE\SODIUM CHLORIDE
     Indication: SUPPORTIVE CARE
     Dosage: UNK
     Route: 065
     Dates: start: 20160711
  15. CARBAMAZEPINE. [Concomitant]
     Active Substance: CARBAMAZEPINE
     Indication: EPILEPSY
     Dosage: UNK
     Route: 065
     Dates: start: 199912
  16. CO CODAMOL [Concomitant]
     Active Substance: ACETAMINOPHEN\CODEINE PHOSPHATE
     Indication: BACK PAIN
     Dosage: UNK UNK, PRN
     Route: 065
     Dates: start: 20160814

REACTIONS (1)
  - Myelofibrosis [Not Recovered/Not Resolved]

NARRATIVE: CASE EVENT DATE: 20160926
